FAERS Safety Report 8513992-6 (Version None)
Quarter: 2012Q3

REPORT INFORMATION
  Report Type: 
  Country: None (occurrence: None)
  Receive Date: 20120717
  Receipt Date: 20120703
  Transmission Date: 20120928
  Serious: Yes (Other)
  Sender: FDA-Public Use
  Company Number: US-JNJFOC-20120703928

PATIENT
  Sex: Male

DRUGS (2)
  1. NEOSPORIN [Suspect]
     Indication: SKIN INFECTION
     Route: 061
  2. COUMADIN [Concomitant]
     Route: 065

REACTIONS (6)
  - GAIT DISTURBANCE [None]
  - CONDITION AGGRAVATED [None]
  - APPLICATION SITE INFLAMMATION [None]
  - PRODUCT QUALITY ISSUE [None]
  - APPLICATION SITE PAIN [None]
  - OFF LABEL USE [None]
